FAERS Safety Report 6595208-3 (Version None)
Quarter: 2010Q1

REPORT INFORMATION
  Report Type: 
  Country: None (occurrence: None)
  Receive Date: 20100212
  Receipt Date: 20100125
  Transmission Date: 20100710
  Serious: Yes (Other)
  Sender: FDA-Public Use
  Company Number: US-1180565

PATIENT
  Age: 47 Year
  Sex: Male

DRUGS (2)
  1. SYSTANE EYE DROPS [Suspect]
     Dosage: (OPHTHALMIC)
     Route: 047
  2. KEPPRA [Suspect]
     Indication: CONVULSION PROPHYLAXIS
     Dosage: (ORAL)
     Route: 048

REACTIONS (3)
  - HALLUCINATION [None]
  - HALLUCINATION, VISUAL [None]
  - VISION BLURRED [None]
